FAERS Safety Report 5873824-1 (Version None)
Quarter: 2008Q3

REPORT INFORMATION
  Report Type: 
  Country: None (occurrence: None)
  Receive Date: 20080903
  Receipt Date: 20080903
  Transmission Date: 20090109
  Serious: Yes (Other)
  Sender: FDA-Public Use
  Company Number: None

PATIENT
  Age: 55 Year
  Sex: Male
  Weight: 128 kg

DRUGS (2)
  1. CLOFARABINE, 5MG, GENZYME, IND # 100992 [Suspect]
     Indication: CHRONIC MYELOMONOCYTIC LEUKAEMIA
     Dosage: 5 MG QD X 10 DAYS PO
     Route: 048
     Dates: start: 20080612, end: 20080621
  2. SUDAFED 12 HOUR [Concomitant]

REACTIONS (1)
  - THROMBOCYTOPENIA [None]
